FAERS Safety Report 19159680 (Version 1)
Quarter: 2021Q2

REPORT INFORMATION
  Report Type: Spontaneous
  Country: CA (occurrence: CA)
  Receive Date: 20210420
  Receipt Date: 20210420
  Transmission Date: 20210717
  Serious: Yes (Other)
  Sender: FDA-Public Use
  Company Number: CA-TAKEDA-2021TUS024109

PATIENT
  Sex: Female

DRUGS (6)
  1. CINRYZE [Suspect]
     Active Substance: HUMAN C1-ESTERASE INHIBITOR
     Indication: PROPHYLAXIS
     Dosage: 3000.0 INTERNATIONAL UNIT, 1/WEEK
     Route: 058
  2. CINRYZE [Suspect]
     Active Substance: HUMAN C1-ESTERASE INHIBITOR
     Indication: PROPHYLAXIS
     Dosage: 3000.0 INTERNATIONAL UNIT, 1/WEEK
     Route: 058
  3. CINRYZE [Suspect]
     Active Substance: HUMAN C1-ESTERASE INHIBITOR
     Indication: HEREDITARY ANGIOEDEMA
     Dosage: 3000.0 INTERNATIONAL UNIT
     Route: 042
  4. CINRYZE [Suspect]
     Active Substance: HUMAN C1-ESTERASE INHIBITOR
     Indication: PROPHYLAXIS
     Dosage: 3000.0 INTERNATIONAL UNIT, 1/WEEK
     Route: 058
  5. CINRYZE [Suspect]
     Active Substance: HUMAN C1-ESTERASE INHIBITOR
     Indication: HEREDITARY ANGIOEDEMA
     Dosage: 3000.0 INTERNATIONAL UNIT
     Route: 042
  6. CINRYZE [Suspect]
     Active Substance: HUMAN C1-ESTERASE INHIBITOR
     Indication: HEREDITARY ANGIOEDEMA
     Dosage: 3000.0 INTERNATIONAL UNIT
     Route: 042

REACTIONS (6)
  - Feeling abnormal [Recovered/Resolved with Sequelae]
  - Impatience [Recovered/Resolved with Sequelae]
  - Personality change [Recovered/Resolved with Sequelae]
  - Aggression [Recovered/Resolved with Sequelae]
  - Impaired driving ability [Recovered/Resolved with Sequelae]
  - Memory impairment [Recovered/Resolved with Sequelae]
